FAERS Safety Report 24798284 (Version 1)
Quarter: 2025Q1

REPORT INFORMATION
  Report Type: Spontaneous
  Country: SE (occurrence: SE)
  Receive Date: 20250102
  Receipt Date: 20250102
  Transmission Date: 20250409
  Serious: Yes (Other)
  Sender: GE HEALTHCARE
  Company Number: None

PATIENT
  Age: 54 Year
  Sex: Male
  Weight: 86 kg

DRUGS (5)
  1. VISIPAQUE [Suspect]
     Active Substance: IODIXANOL
     Indication: Ultrasound scan
     Route: 042
     Dates: start: 20241210, end: 20241210
  2. VISIPAQUE [Suspect]
     Active Substance: IODIXANOL
     Indication: Computerised tomogram heart
  3. OMNIPAQUE [Suspect]
     Active Substance: IOHEXOL
     Indication: Ultrasound scan
     Route: 042
     Dates: start: 20241210, end: 20241210
  4. OMNIPAQUE [Suspect]
     Active Substance: IOHEXOL
     Indication: Computerised tomogram heart
  5. NITROLINGUAL [Concomitant]
     Active Substance: NITROGLYCERIN
     Route: 048
     Dates: start: 20241210, end: 20241210

REACTIONS (4)
  - Nasal congestion [Recovered/Resolved]
  - Sneezing [Recovered/Resolved]
  - Dyspnoea [Recovered/Resolved]
  - Discomfort [Recovered/Resolved]

NARRATIVE: CASE EVENT DATE: 20241210
